FAERS Safety Report 4967757-2 (Version None)
Quarter: 2006Q2

REPORT INFORMATION
  Report Type: 
  Country: None (occurrence: None)
  Receive Date: 20060410
  Receipt Date: 20050401
  Transmission Date: 20061013
  Serious: Yes (Hospitalization, Disabling, Other)
  Sender: FDA-Public Use
  Company Number: US-MERCK-0504USA00817

PATIENT
  Age: 77 Year
  Sex: Male
  Weight: 98 kg

DRUGS (8)
  1. VIOXX [Suspect]
     Indication: NEURALGIA
     Route: 048
     Dates: start: 20020601, end: 20021001
  2. VIOXX [Suspect]
     Route: 048
     Dates: start: 20040301, end: 20040929
  3. VIOXX [Suspect]
     Route: 048
     Dates: start: 20020601, end: 20021001
  4. VIOXX [Suspect]
     Route: 048
     Dates: start: 20040301, end: 20040929
  5. VIOXX [Suspect]
     Indication: ARTHRITIS
     Route: 048
     Dates: start: 20020601, end: 20021001
  6. VIOXX [Suspect]
     Route: 048
     Dates: start: 20040301, end: 20040929
  7. VIOXX [Suspect]
     Route: 048
     Dates: start: 20020601, end: 20021001
  8. VIOXX [Suspect]
     Route: 048
     Dates: start: 20040301, end: 20040929

REACTIONS (6)
  - ADVERSE EVENT [None]
  - INJURY [None]
  - JOINT INJURY [None]
  - KNEE ARTHROPLASTY [None]
  - PULMONARY EMBOLISM [None]
  - PULMONARY THROMBOSIS [None]
